FAERS Safety Report 21884718 (Version 1)
Quarter: 2023Q1

REPORT INFORMATION
  Report Type: Report from Study
  Country: US (occurrence: US)
  Receive Date: 20230119
  Receipt Date: 20230119
  Transmission Date: 20230418
  Serious: No
  Sender: FDA-Public Use
  Company Number: US-ABBVIE-4242218

PATIENT
  Sex: Male

DRUGS (1)
  1. HUMIRA [Suspect]
     Active Substance: ADALIMUMAB
     Indication: Ankylosing spondylitis
     Dosage: CITRATE FREE
     Route: 058

REACTIONS (7)
  - Skin disorder [Unknown]
  - Ankylosing spondylitis [Unknown]
  - Erythema [Unknown]
  - Papule [Unknown]
  - Therapeutic response shortened [Unknown]
  - Skin irritation [Unknown]
  - Pain of skin [Unknown]
